FAERS Safety Report 8803792 (Version 1)
Quarter: 2012Q4

REPORT INFORMATION
  Report Type: 
  Country: US (occurrence: US)
  Receive Date: 20120923
  Receipt Date: 20120923
  Transmission Date: 20130627
  Serious: No
  Sender: FDA-Public Use
  Company Number: US-009507513-1209USA005739

PATIENT
  Age: 80 Year
  Sex: Male

DRUGS (2)
  1. JANUVIA [Suspect]
     Indication: DIABETES MELLITUS
     Dosage: 25 mg, qam
     Route: 048
  2. GLIMEPIRIDE [Concomitant]
     Indication: DIABETES MELLITUS

REACTIONS (1)
  - Blood phosphorus increased [Not Recovered/Not Resolved]
